FAERS Safety Report 10216383 (Version 1)
Quarter: 2014Q2

REPORT INFORMATION
  Report Type: Spontaneous
  Country: US (occurrence: None)
  Receive Date: 20140603
  Receipt Date: 20140603
  Transmission Date: 20141212
  Serious: Yes (Disabling)
  Sender: FDA-Public Use
  Company Number: None

PATIENT
  Age: 51 Year
  Sex: Female
  Weight: 70 kg

DRUGS (2)
  1. TOPROL XL [Suspect]
     Indication: CARDIAC DISORDER
     Dosage: 1 PILLS ?ONCE DAILY ?TAKEN BY MOUTH??PST 15 YEARS OR S
     Route: 048
  2. TOPROL XL [Suspect]
     Indication: MIGRAINE
     Dosage: 1 PILLS ?ONCE DAILY ?TAKEN BY MOUTH??PST 15 YEARS OR S
     Route: 048

REACTIONS (2)
  - Drug ineffective [None]
  - Product substitution issue [None]
